FAERS Safety Report 15842410 (Version 2)
Quarter: 2019Q1

REPORT INFORMATION
  Report Type: Spontaneous
  Country: US (occurrence: US)
  Receive Date: 20190118
  Receipt Date: 20190314
  Transmission Date: 20190417
  Serious: No
  Sender: FDA-Public Use
  Company Number: US-SA-2019SA012441

PATIENT
  Age: 61 Year
  Sex: Female

DRUGS (1)
  1. AUBAGIO [Suspect]
     Active Substance: TERIFLUNOMIDE
     Indication: MULTIPLE SCLEROSIS
     Dosage: 14 MG, QD
     Route: 048
     Dates: start: 20181120

REACTIONS (7)
  - Rash [Unknown]
  - Fatigue [Unknown]
  - Paraesthesia [Unknown]
  - Fall [Unknown]
  - Vision blurred [Unknown]
  - Decreased appetite [Unknown]
  - Alopecia [Unknown]
